FAERS Safety Report 7901786-1 (Version None)
Quarter: 2011Q4

REPORT INFORMATION
  Report Type: 
  Country: None (occurrence: None)
  Receive Date: 20111108
  Receipt Date: 20111031
  Transmission Date: 20120403
  Serious: Yes (Hospitalization, Other)
  Sender: FDA-Public Use
  Company Number: US-JNJFOC-20111100486

PATIENT
  Sex: Female
  Weight: 81.65 kg

DRUGS (3)
  1. ELMIRON [Suspect]
     Indication: CYSTITIS INTERSTITIAL
     Route: 048
     Dates: start: 20010101
  2. POTASSIUM [Concomitant]
     Indication: HYPOKALAEMIA
     Route: 048
  3. ELMIRON [Suspect]
     Route: 048
     Dates: start: 20100101

REACTIONS (13)
  - GASTRIC DISORDER [None]
  - INTENTIONAL DRUG MISUSE [None]
  - HYPERTENSION [None]
  - SURGERY [None]
  - BLOOD CHOLESTEROL INCREASED [None]
  - HAEMORRHAGE [None]
  - HOUSE DUST ALLERGY [None]
  - WHITE BLOOD CELL COUNT INCREASED [None]
  - EAR INFECTION [None]
  - COAGULOPATHY [None]
  - HYPOVITAMINOSIS [None]
  - MYCOTIC ALLERGY [None]
  - IRON DEFICIENCY [None]
